FAERS Safety Report 17121877 (Version 5)
Quarter: 2020Q3

REPORT INFORMATION
  Report Type: Spontaneous
  Country: US (occurrence: US)
  Receive Date: 20191206
  Receipt Date: 20200702
  Transmission Date: 20201102
  Serious: Yes (Hospitalization, Other)
  Sender: FDA-Public Use
  Company Number: US-PFIZER INC-2019524930

PATIENT
  Age: 49 Year
  Sex: Female

DRUGS (1)
  1. XELJANZ [Suspect]
     Active Substance: TOFACITINIB CITRATE
     Indication: RHEUMATOID ARTHRITIS
     Dosage: 5 MG, 2X/DAY
     Route: 048
     Dates: start: 20180516

REACTIONS (5)
  - Fall [Unknown]
  - Memory impairment [Unknown]
  - Intentional product misuse [Unknown]
  - Pain [Unknown]
  - Lower limb fracture [Unknown]

NARRATIVE: CASE EVENT DATE: 202001
